FAERS Safety Report 4723166-2 (Version None)
Quarter: 2005Q3

REPORT INFORMATION
  Report Type: 
  Country: None (occurrence: None)
  Receive Date: 20050719
  Receipt Date: 20040809
  Transmission Date: 20060218
  Serious: Yes (Hospitalization, Other)
  Sender: FDA-Public Use
  Company Number: 2004227865US

PATIENT
  Age: 61 Year
  Sex: Male
  Weight: 122.4 kg

DRUGS (4)
  1. CELEBREX [Suspect]
     Indication: ARTHRITIS
     Dosage: 200 MG, QD, ORAL
     Route: 048
     Dates: start: 20040730
  2. MONTELUKAST (MONTELUKAST) [Concomitant]
  3. NORVASC [Concomitant]
  4. HYZAAR [Concomitant]

REACTIONS (3)
  - DYSPNOEA [None]
  - FEELING ABNORMAL [None]
  - PULMONARY EMBOLISM [None]
